FAERS Safety Report 21877294 (Version 1)
Quarter: 2023Q1

REPORT INFORMATION
  Report Type: Spontaneous
  Country: US (occurrence: None)
  Receive Date: 20230116
  Receipt Date: 20230116
  Transmission Date: 20230417
  Serious: Yes (Hospitalization)
  Sender: FDA-Public Use
  Company Number: None

PATIENT
  Sex: Female

DRUGS (2)
  1. KESIMPTA [Suspect]
     Active Substance: OFATUMUMAB
     Route: 058
  2. MAVENCLAD [Suspect]
     Active Substance: CLADRIBINE

REACTIONS (7)
  - Spinal pain [None]
  - Osteomyelitis [None]
  - Deep vein thrombosis [None]
  - Anaemia [None]
  - Device issue [None]
  - Hypotension [None]
  - Urinary tract infection [None]
